FAERS Safety Report 12213349 (Version 1)
Quarter: 2016Q1

REPORT INFORMATION
  Report Type: Spontaneous
  Country: US (occurrence: US)
  Receive Date: 20160328
  Receipt Date: 20160328
  Transmission Date: 20160526
  Serious: No
  Sender: FDA-Public Use
  Company Number: US-BAYER-2016-050867

PATIENT
  Sex: Female

DRUGS (2)
  1. CHLOR-TRIMETON 4HOUR [Suspect]
     Active Substance: CHLORPHENIRAMINE MALEATE
     Indication: EOSINOPHILIC OESOPHAGITIS
     Route: 048
  2. CLARITIN [Suspect]
     Active Substance: LORATADINE
     Indication: EOSINOPHILIC OESOPHAGITIS
     Route: 048

REACTIONS (2)
  - Drug ineffective [None]
  - Product use issue [None]
